FAERS Safety Report 15962118 (Version 1)
Quarter: 2019Q1

REPORT INFORMATION
  Report Type: Spontaneous
  Country: US (occurrence: US)
  Receive Date: 20190124
  Receipt Date: 20190124
  Transmission Date: 20190417
  Serious: No
  Sender: FDA-Public Use
  Company Number: None

PATIENT
  Age: 67 Year
  Sex: Female
  Weight: 56.25 kg

DRUGS (6)
  1. LEVOFLOXACIN (LEVAQUIN) 500MG [Suspect]
     Active Substance: LEVOFLOXACIN
     Indication: BRONCHIECTASIS
     Dosage: 1 TABLET /MORNING;?
     Route: 048
     Dates: start: 20181128
  2. ESTRIDIOL [Concomitant]
  3. VITAMIN C [Concomitant]
     Active Substance: ASCORBIC ACID
  4. VITAMINS/MINERALS [Concomitant]
  5. ALPRAZOLAM. [Concomitant]
     Active Substance: ALPRAZOLAM
  6. MULTIVITAMINS [Concomitant]
     Active Substance: VITAMINS

REACTIONS (5)
  - Loss of personal independence in daily activities [None]
  - Tendonitis [None]
  - Tendon disorder [None]
  - Quality of life decreased [None]
  - Tendon rupture [None]

NARRATIVE: CASE EVENT DATE: 20181201
